FAERS Safety Report 23438426 (Version 1)
Quarter: 2024Q1

REPORT INFORMATION
  Report Type: Spontaneous
  Country: CN (occurrence: CN)
  Receive Date: 20240124
  Receipt Date: 20240124
  Transmission Date: 20240410
  Serious: Yes (Other)
  Sender: FDA-Public Use
  Company Number: None

PATIENT
  Age: 37 Year
  Sex: Female
  Weight: 63 kg

DRUGS (4)
  1. CYCLOPHOSPHAMIDE [Suspect]
     Active Substance: CYCLOPHOSPHAMIDE
     Indication: Breast cancer female
     Dosage: 1 G, ONE TIME IN ONE DAY, D1, DILUTED WITH 50 ML OF 0.9% SODIUM CHLORIDE
     Route: 041
     Dates: start: 20231227, end: 20231227
  2. SODIUM CHLORIDE [Suspect]
     Active Substance: SODIUM CHLORIDE
     Indication: Vehicle solution use
     Dosage: 50 ML, ONE TIME IN ONE DAY, D1, STRENGTH: 0.9%, DOSAGE FORM: INJECTION, USED TO DILUTE 1 G CYCLOPHOS
     Route: 041
     Dates: start: 20231227, end: 20231227
  3. SODIUM CHLORIDE [Suspect]
     Active Substance: SODIUM CHLORIDE
     Dosage: 350 ML, ONE TIME IN ONE DAY, D1, STRENGTH: 0.9%, DOSAGE FORM: INJECTION, USED TO DILUTE 130 MG DOCET
     Route: 041
     Dates: start: 20231227, end: 20231227
  4. DOCETAXEL [Suspect]
     Active Substance: DOCETAXEL\DOCETAXEL ANHYDROUS
     Indication: Breast cancer female
     Dosage: 130 MG, ONE TIME IN ONE DAY, D1, DILUTED WITH 350 ML OF 0.9% SODIUM CHLORIDE
     Route: 041
     Dates: start: 20231227, end: 20231227

REACTIONS (1)
  - Myelosuppression [Recovering/Resolving]

NARRATIVE: CASE EVENT DATE: 20240103
